FAERS Safety Report 9908304 (Version 2)
Quarter: 2014Q1

REPORT INFORMATION
  Report Type: Spontaneous
  Country: CA (occurrence: CA)
  Receive Date: 20140219
  Receipt Date: 20140227
  Transmission Date: 20141002
  Serious: Yes (Hospitalization)
  Sender: FDA-Public Use
  Company Number: CA-AMGEN-CANSP2014011606

PATIENT
  Age: 56 Year
  Sex: Female

DRUGS (6)
  1. ENBREL [Suspect]
     Indication: RHEUMATOID ARTHRITIS
     Dosage: 50 MG, UNK
     Route: 065
     Dates: start: 20111018
  2. TRIDURAL [Concomitant]
     Dosage: UNK
  3. MTX                                /00113801/ [Concomitant]
     Dosage: UNK
  4. NAPROXEN [Concomitant]
     Dosage: UNK, UNK, AS NEEDED
  5. SOTALOL [Concomitant]
     Dosage: UNK
  6. ALPRAZOLAM [Concomitant]
     Dosage: UNK

REACTIONS (3)
  - Suicide attempt [Not Recovered/Not Resolved]
  - Rash pruritic [Not Recovered/Not Resolved]
  - Rash erythematous [Not Recovered/Not Resolved]
